FAERS Safety Report 5104898-3 (Version None)
Quarter: 2006Q3

REPORT INFORMATION
  Report Type: 
  Country: None (occurrence: None)
  Receive Date: 20060914
  Receipt Date: 20060608
  Transmission Date: 20061208
  Serious: Yes (Other)
  Sender: FDA-Public Use
  Company Number: PHEH2006US07535

PATIENT
  Age: 73 Year
  Sex: Male

DRUGS (3)
  1. GLEEVEC [Suspect]
     Indication: CHRONIC MYELOID LEUKAEMIA
     Dosage: 400 MG, QD
     Route: 048
     Dates: start: 20060401, end: 20060815
  2. PROSCAR [Concomitant]
     Dosage: 5 MG, QD
     Route: 048
  3. ANTIHISTAMINES [Concomitant]
     Dosage: UNK, PRN
     Route: 048

REACTIONS (6)
  - CARDIAC MURMUR [None]
  - CARDIOMYOPATHY [None]
  - DYSPNOEA EXERTIONAL [None]
  - EJECTION FRACTION DECREASED [None]
  - TACHYCARDIA [None]
  - TRICUSPID VALVE INCOMPETENCE [None]
